FAERS Safety Report 8257152-5 (Version None)
Quarter: 2012Q2

REPORT INFORMATION
  Report Type: 
  Country: None (occurrence: None)
  Receive Date: 20120403
  Receipt Date: 20120330
  Transmission Date: 20120825
  Serious: Yes (Death)
  Sender: FDA-Public Use
  Company Number: US-ROXANE LABORATORIES, INC.-2012-RO-00928RO

PATIENT

DRUGS (5)
  1. METHADONE HCL [Suspect]
  2. OXYCONTIN [Suspect]
  3. OXYCODONE HCL [Suspect]
  4. BENADRYL [Suspect]
  5. ALBUTEROL [Suspect]
     Route: 055

REACTIONS (1)
  - OVERDOSE [None]
